FAERS Safety Report 8082665-9 (Version None)
Quarter: 2012Q1

REPORT INFORMATION
  Report Type: 
  Country: None (occurrence: None)
  Receive Date: 20120127
  Receipt Date: 20110216
  Transmission Date: 20120608
  Serious: No
  Sender: FDA-Public Use
  Company Number: US-ABBOTT-11P-163-0706510-00

PATIENT
  Sex: Female
  Weight: 80.812 kg

DRUGS (3)
  1. HUMIRA [Suspect]
     Indication: RHEUMATOID ARTHRITIS
     Route: 058
     Dates: start: 20080101
  2. METHOTREXATE [Concomitant]
     Indication: RHEUMATOID ARTHRITIS
     Dosage: 8 EVERY TUESDAY
  3. IBUPROFEN [Concomitant]
     Indication: RHEUMATOID ARTHRITIS
     Dosage: UP TO 4 TABS/DAY AS NEEDED

REACTIONS (4)
  - RASH PAPULAR [None]
  - JOINT SWELLING [None]
  - RASH PRURITIC [None]
  - ARTHRALGIA [None]
